FAERS Safety Report 18305416 (Version 4)
Quarter: 2020Q4

REPORT INFORMATION
  Report Type: Spontaneous
  Country: FR (occurrence: FR)
  Receive Date: 20200923
  Receipt Date: 20201103
  Transmission Date: 20210113
  Serious: No
  Sender: FDA-Public Use
  Company Number: FR-JNJFOC-20200919059

PATIENT
  Age: 3 Decade
  Sex: Female

DRUGS (12)
  1. DUROGESIC [Suspect]
     Active Substance: FENTANYL
  2. DUROGESIC [Suspect]
     Active Substance: FENTANYL
  3. DUROGESIC [Suspect]
     Active Substance: FENTANYL
  4. DUROGESIC [Suspect]
     Active Substance: FENTANYL
     Indication: PRODUCT USED FOR UNKNOWN INDICATION
     Route: 062
  5. DUROGESIC [Suspect]
     Active Substance: FENTANYL
  6. DUROGESIC [Suspect]
     Active Substance: FENTANYL
     Indication: PRODUCT USED FOR UNKNOWN INDICATION
     Dosage: STRENGTH: 12.00 MCG/HR
     Route: 062
  7. DUROGESIC [Suspect]
     Active Substance: FENTANYL
  8. DUROGESIC [Suspect]
     Active Substance: FENTANYL
  9. DUROGESIC [Suspect]
     Active Substance: FENTANYL
  10. DUROGESIC [Suspect]
     Active Substance: FENTANYL
  11. DUROGESIC [Suspect]
     Active Substance: FENTANYL
  12. DUROGESIC [Suspect]
     Active Substance: FENTANYL

REACTIONS (2)
  - Product label issue [Unknown]
  - Drug ineffective [Unknown]
